FAERS Safety Report 18153524 (Version 5)
Quarter: 2020Q4

REPORT INFORMATION
  Report Type: Report from Study
  Country: US (occurrence: US)
  Receive Date: 20200816
  Receipt Date: 20201116
  Transmission Date: 20210113
  Serious: Yes (Other)
  Sender: FDA-Public Use
  Company Number: NVSC2020US221665

PATIENT
  Age: 61 Year
  Sex: Female

DRUGS (1)
  1. COSENTYX [Suspect]
     Active Substance: SECUKINUMAB
     Indication: ANKYLOSING SPONDYLITIS
     Dosage: 300 MG, UNKNOWN
     Route: 065

REACTIONS (10)
  - Therapeutic product effect incomplete [Unknown]
  - Ankylosing spondylitis [Unknown]
  - Musculoskeletal stiffness [Unknown]
  - Sleep disorder [Unknown]
  - Arthralgia [Unknown]
  - Back pain [Unknown]
  - Asthenia [Unknown]
  - Neck pain [Unknown]
  - Fatigue [Unknown]
  - Peripheral coldness [Unknown]
